FAERS Safety Report 25177395 (Version 1)
Quarter: 2025Q2

REPORT INFORMATION
  Report Type: Spontaneous
  Country: CO (occurrence: CO)
  Receive Date: 20250409
  Receipt Date: 20250409
  Transmission Date: 20250717
  Serious: Yes (Other)
  Sender: NOVARTIS
  Company Number: CO-002147023-NVSC2025CO056908

PATIENT
  Age: 24 Year
  Sex: Female

DRUGS (1)
  1. SECUKINUMAB [Suspect]
     Active Substance: SECUKINUMAB
     Indication: Systemic lupus erythematosus
     Route: 065

REACTIONS (4)
  - Systemic lupus erythematosus [Unknown]
  - Disease recurrence [Unknown]
  - Pain [Unknown]
  - Off label use [Unknown]
